FAERS Safety Report 5947651-0 (Version None)
Quarter: 2008Q4

REPORT INFORMATION
  Report Type: 
  Country: None (occurrence: None)
  Receive Date: 20081107
  Receipt Date: 20081029
  Transmission Date: 20090506
  Serious: Yes (Other)
  Sender: FDA-Public Use
  Company Number: ADE2008-0367

PATIENT
  Sex: Female

DRUGS (2)
  1. FINASTERIDE [Suspect]
     Indication: ANDROGENETIC ALOPECIA
     Dosage: 1MG -
     Dates: end: 20080824
  2. LEVONORGESTREL [Suspect]
     Indication: CONTRACEPTION

REACTIONS (5)
  - ABORTION SPONTANEOUS [None]
  - BACK PAIN [None]
  - DRUG EXPOSURE DURING PREGNANCY [None]
  - PATERNAL DRUGS AFFECTING FOETUS [None]
  - PREGNANCY ON CONTRACEPTIVE [None]
